FAERS Safety Report 8626013-1 (Version None)
Quarter: 2012Q3

REPORT INFORMATION
  Report Type: 
  Country: None (occurrence: None)
  Receive Date: 20120827
  Receipt Date: 20120823
  Transmission Date: 20120928
  Serious: Yes (Death)
  Sender: FDA-Public Use
  Company Number: AT-ROCHE-1107242

PATIENT
  Age: 41 Year
  Sex: Male

DRUGS (2)
  1. AVASTIN [Suspect]
     Indication: BRAIN NEOPLASM MALIGNANT
  2. IRINOTECAN HYDROCHLORIDE [Suspect]
     Indication: BRAIN NEOPLASM MALIGNANT

REACTIONS (2)
  - NEOPLASM PROGRESSION [None]
  - GENERAL PHYSICAL HEALTH DETERIORATION [None]
